FAERS Safety Report 20791943 (Version 1)
Quarter: 2022Q2

REPORT INFORMATION
  Report Type: Spontaneous
  Country: US (occurrence: US)
  Receive Date: 20220505
  Receipt Date: 20220505
  Transmission Date: 20220721
  Serious: No
  Sender: FDA-Public Use
  Company Number: US-PFIZER INC-202101227283

PATIENT
  Age: 58 Year
  Sex: Female

DRUGS (2)
  1. XELJANZ XR [Suspect]
     Active Substance: TOFACITINIB CITRATE
     Indication: Rheumatoid arthritis
     Dosage: 11 MG, DAILY
     Route: 048
     Dates: start: 20210914
  2. XELJANZ XR [Suspect]
     Active Substance: TOFACITINIB CITRATE
     Dosage: 11 MG, DAILY
     Route: 048
     Dates: start: 20211219

REACTIONS (14)
  - Peripheral swelling [Recovering/Resolving]
  - Arthritis [Unknown]
  - Arthritis [Unknown]
  - Insomnia [Unknown]
  - Gait disturbance [Unknown]
  - Pain [Unknown]
  - Depression [Unknown]
  - Peripheral swelling [Unknown]
  - Stress [Unknown]
  - Palpitations [Unknown]
  - Chest pain [Unknown]
  - Fatigue [Unknown]
  - Discouragement [Unknown]
  - Headache [Unknown]
